FAERS Safety Report 12267873 (Version 3)
Quarter: 2016Q2

REPORT INFORMATION
  Report Type: Report from Study
  Country: CA (occurrence: CA)
  Receive Date: 20160414
  Receipt Date: 20160524
  Transmission Date: 20160815
  Serious: Yes (Other)
  Sender: FDA-Public Use
  Company Number: CA-REGENERON PHARMACEUTICALS, INC.-2016-15455

PATIENT

DRUGS (3)
  1. EYLEA [Suspect]
     Active Substance: AFLIBERCEPT
     Indication: DIABETIC RETINAL OEDEMA
     Dosage: UNK, OS
     Route: 031
     Dates: start: 20160329
  2. EYE DROPS [Suspect]
     Active Substance: TETRAHYDROZOLINE HYDROCHLORIDE
     Indication: PRODUCT USED FOR UNKNOWN INDICATION
     Dosage: UNK
  3. EYLEA [Suspect]
     Active Substance: AFLIBERCEPT
     Dosage: UNK, OS
     Route: 031
     Dates: start: 20160427, end: 20160427

REACTIONS (4)
  - Dry eye [Unknown]
  - Application site pain [Unknown]
  - Erythema [Unknown]
  - Application site bruise [Unknown]

NARRATIVE: CASE EVENT DATE: 2016
